FAERS Safety Report 15705135 (Version 3)
Quarter: 2020Q1

REPORT INFORMATION
  Report Type: Spontaneous
  Country: JP (occurrence: JP)
  Receive Date: 20181210
  Receipt Date: 20200221
  Transmission Date: 20200409
  Serious: Yes (Death, Hospitalization)
  Sender: FDA-Public Use
  Company Number: JP-EISAI MEDICAL RESEARCH-EC-2018-039300

PATIENT
  Age: 73 Year
  Sex: Male

DRUGS (3)
  1. LENVATINIB [Suspect]
     Active Substance: LENVATINIB
     Route: 048
     Dates: start: 2018, end: 20180513
  2. LENVATINIB [Suspect]
     Active Substance: LENVATINIB
     Route: 048
     Dates: start: 20180515, end: 2018
  3. LENVATINIB [Suspect]
     Active Substance: LENVATINIB
     Indication: ANAPLASTIC THYROID CANCER
     Route: 048
     Dates: start: 20180413, end: 20180416

REACTIONS (5)
  - Paralysis recurrent laryngeal nerve [Not Recovered/Not Resolved]
  - Infection [Not Recovered/Not Resolved]
  - Proteinuria [Recovered/Resolved]
  - Malignant neoplasm progression [Fatal]
  - Dysphagia [Unknown]

NARRATIVE: CASE EVENT DATE: 2018
